FAERS Safety Report 5244244-8 (Version None)
Quarter: 2007Q1

REPORT INFORMATION
  Report Type: 
  Country: None (occurrence: None)
  Receive Date: 20070222
  Receipt Date: 20070215
  Transmission Date: 20070707
  Serious: Yes (Hospitalization)
  Sender: FDA-Public Use
  Company Number: AU-JNJFOC-20070204553

PATIENT
  Age: 27 Year
  Sex: Female

DRUGS (1)
  1. TRAMADOL HYDROCHLORIDE [Suspect]
     Indication: UTERINE INFECTION
     Route: 048

REACTIONS (4)
  - BURNING SENSATION [None]
  - EYELID OEDEMA [None]
  - PRURITUS [None]
  - URTICARIA [None]
